FAERS Safety Report 20081617 (Version 1)
Quarter: 2021Q4

REPORT INFORMATION
  Report Type: Spontaneous
  Country: CA (occurrence: CA)
  Receive Date: 20211117
  Receipt Date: 20211117
  Transmission Date: 20220303
  Serious: Yes (Hospitalization, Other)
  Sender: FDA-Public Use
  Company Number: CA-TEVA-2021-CA-1977694

PATIENT
  Sex: Female
  Weight: 96 kg

DRUGS (4)
  1. CAPECITABINE [Suspect]
     Active Substance: CAPECITABINE
     Indication: Product used for unknown indication
     Route: 065
  2. OGIVRI [Suspect]
     Active Substance: TRASTUZUMAB-DKST
     Indication: Breast cancer metastatic
     Route: 042
  3. OGIVRI [Suspect]
     Active Substance: TRASTUZUMAB-DKST
     Route: 042
  4. IRBINITINIB [Suspect]
     Active Substance: IRBINITINIB
     Indication: Product used for unknown indication
     Route: 065

REACTIONS (4)
  - Catheter site infection [Unknown]
  - Dehydration [Unknown]
  - Diarrhoea [Unknown]
  - Gastrointestinal toxicity [Unknown]
